FAERS Safety Report 4890753-0 (Version None)
Quarter: 2006Q1

REPORT INFORMATION
  Report Type: 
  Country: None (occurrence: None)
  Receive Date: 20060123
  Receipt Date: 20060110
  Transmission Date: 20060701
  Serious: Yes (Hospitalization)
  Sender: FDA-Public Use
  Company Number: FABR-11304

PATIENT
  Age: 49 Year
  Sex: Male
  Weight: 61 kg

DRUGS (2)
  1. FABRAZYME [Suspect]
     Indication: FABRY'S DISEASE
     Dosage: 35 MG QWK IV
     Route: 042
     Dates: start: 20050601
  2. FABRAZYME [Suspect]
     Indication: FABRY'S DISEASE
     Dosage: 1 MG/KG Q2WKS IV
     Route: 042
     Dates: start: 20020913, end: 20040108

REACTIONS (4)
  - CEREBROVASCULAR ACCIDENT [None]
  - HAEMODIALYSIS [None]
  - HYPERTENSION [None]
  - RENAL FAILURE CHRONIC [None]
